FAERS Safety Report 18065512 (Version 2)
Quarter: 2021Q1

REPORT INFORMATION
  Report Type: Spontaneous
  Country: FR (occurrence: FR)
  Receive Date: 20200724
  Receipt Date: 20210101
  Transmission Date: 20210419
  Serious: Yes (Hospitalization)
  Sender: FDA-Public Use
  Company Number: NVSC2020FR202063

PATIENT
  Age: 71 Year
  Sex: Male
  Weight: 60 kg

DRUGS (2)
  1. TRAVOPROST. [Suspect]
     Active Substance: TRAVOPROST
     Indication: GLAUCOMA
     Dosage: UNK UNK, QD (ONCE DAILY IN THE EVENING)
     Route: 065
     Dates: start: 20181204
  2. DEBRIDAT AP [Concomitant]
     Indication: DYSPEPSIA
     Dosage: 2 DF, QD (2 DF, QD1 DF, AS NECESSARY)
     Route: 048

REACTIONS (2)
  - Palpitations [Recovered/Resolved]
  - Ischaemic stroke [Recovered/Resolved with Sequelae]

NARRATIVE: CASE EVENT DATE: 2019
